FAERS Safety Report 10089176 (Version 7)
Quarter: 2015Q4

REPORT INFORMATION
  Report Type: Report from Study
  Country: FR (occurrence: FR)
  Receive Date: 20140421
  Receipt Date: 20151105
  Transmission Date: 20160304
  Serious: Yes (Hospitalization)
  Sender: FDA-Public Use
  Company Number: FR-ROCHE-1356345

PATIENT
  Age: 38 Year
  Sex: Female
  Weight: 92 kg

DRUGS (12)
  1. MINIRIN [Concomitant]
     Active Substance: DESMOPRESSIN ACETATE
     Route: 065
     Dates: start: 20130821
  2. STAGID [Concomitant]
     Active Substance: METFORMIN PAMOATE
     Route: 065
     Dates: start: 2013
  3. CACIT D3 [Concomitant]
     Active Substance: CALCIUM\CHOLECALCIFEROL
     Route: 065
     Dates: start: 20140108
  4. LANTUS [Concomitant]
     Active Substance: INSULIN GLARGINE
     Route: 065
     Dates: start: 201310
  5. TRASTUZUMAB EMTANSINE [Suspect]
     Active Substance: ADO-TRASTUZUMAB EMTANSINE
     Indication: HER-2 POSITIVE BREAST CANCER
     Dosage: DATE OF LAST DOSE PRIOR TO SAE 13/FEB/2014
     Route: 042
     Dates: start: 20130327, end: 20140224
  6. REPAGLINIDE. [Concomitant]
     Active Substance: REPAGLINIDE
     Route: 065
     Dates: start: 201401
  7. TRASTUZUMAB EMTANSINE [Suspect]
     Active Substance: ADO-TRASTUZUMAB EMTANSINE
     Route: 042
     Dates: start: 20140327
  8. INEXIUM [Concomitant]
     Active Substance: ESOMEPRAZOLE
     Route: 065
     Dates: start: 20140220, end: 20140223
  9. GAVISCON (CALCIUM CARBONATE/SODIUM ALGINATE/SODIUM BICARBONATE) [Concomitant]
     Route: 065
     Dates: start: 20140220, end: 20140220
  10. PARACETAMOL [Concomitant]
     Active Substance: ACETAMINOPHEN
     Route: 065
     Dates: start: 20140220, end: 20140220
  11. HYDROCORTISONE. [Concomitant]
     Active Substance: HYDROCORTISONE
  12. LEVOTHYROX [Concomitant]
     Active Substance: LEVOTHYROXINE

REACTIONS (1)
  - Lung infection [Recovered/Resolved]

NARRATIVE: CASE EVENT DATE: 20140217
